FAERS Safety Report 7113974-5 (Version None)
Quarter: 2010Q4

REPORT INFORMATION
  Report Type: 
  Country: None (occurrence: None)
  Receive Date: 20101119
  Receipt Date: 20101117
  Transmission Date: 20110411
  Serious: Yes (Other)
  Sender: FDA-Public Use
  Company Number: A0893001A

PATIENT

DRUGS (2)
  1. FLOVENT [Suspect]
     Route: 055
  2. UNKNOWN [Concomitant]

REACTIONS (1)
  - ADRENAL INSUFFICIENCY [None]
